FAERS Safety Report 15494463 (Version 2)
Quarter: 2018Q4

REPORT INFORMATION
  Report Type: Report from Study
  Country: GR (occurrence: GR)
  Receive Date: 20181012
  Receipt Date: 20181101
  Transmission Date: 20190205
  Serious: Yes (Hospitalization)
  Sender: FDA-Public Use
  Company Number: GR-REGENERON PHARMACEUTICALS, INC.-2018-39599

PATIENT

DRUGS (9)
  1. MADOPAR [Concomitant]
     Active Substance: BENSERAZIDE HYDROCHLORIDE\LEVODOPA
     Indication: PARKINSON^S DISEASE
     Dosage: 250 MG, BID
     Route: 048
  2. CEMIPLIMAB [Suspect]
     Active Substance: CEMIPLIMAB
     Indication: BASAL CELL CARCINOMA
     Dosage: 350 MG, Q3W
     Dates: start: 20180402, end: 20180829
  3. FUROLIN [Concomitant]
     Active Substance: NITROFURANTOIN
     Indication: PROSTATE CANCER
     Dosage: 100 MG, QD
     Route: 048
     Dates: start: 2017
  4. ZURCAZOL [Concomitant]
     Active Substance: PANTOPRAZOLE SODIUM
     Indication: PROPHYLAXIS
     Dosage: 40 MG, QID
     Route: 048
  5. FRESUBIN                           /07459901/ [Concomitant]
     Active Substance: CARBOHYDRATES\FATTY ACIDS\MINERALS\PROTEIN\VITAMINS
     Indication: WEIGHT DECREASED
     Dosage: 200 ML, BID
     Route: 048
     Dates: start: 20180912, end: 20180917
  6. CEMIPLIMAB [Suspect]
     Active Substance: CEMIPLIMAB
     Dosage: 350 MG, Q3W
     Route: 042
     Dates: start: 20180917
  7. MEMODRIN [Concomitant]
     Indication: MEMORY IMPAIRMENT
     Dosage: 750 MG, QID
     Route: 048
  8. T4 [Concomitant]
     Active Substance: LEVOTHYROXINE
     Indication: HYPOTHYROIDISM
     Dosage: 50 MG, QID
     Route: 048
  9. OTOCORT (NEOMYCIN SULFATE+DEXAMETHASONE+ACETIC ACID) [Concomitant]
     Indication: OTITIS EXTERNA
     Dosage: 2 GTT, BID
     Route: 001
     Dates: start: 20180804, end: 20180811

REACTIONS (1)
  - Soft tissue infection [Recovered/Resolved]

NARRATIVE: CASE EVENT DATE: 20181005
